FAERS Safety Report 5595912-X (Version None)
Quarter: 2008Q1

REPORT INFORMATION
  Report Type: 
  Country: None (occurrence: None)
  Receive Date: 20080118
  Receipt Date: 20080109
  Transmission Date: 20080703
  Serious: Yes (Other)
  Sender: FDA-Public Use
  Company Number: FR-ASTRAZENECA-2008CG00057

PATIENT
  Age: 38 Year
  Sex: Female

DRUGS (7)
  1. PROPOFOL [Suspect]
     Indication: GENERAL ANAESTHESIA
     Route: 042
     Dates: start: 20030101, end: 20030101
  2. PROPOFOL [Suspect]
     Route: 042
     Dates: start: 20071115, end: 20071115
  3. TRIATEC [Concomitant]
     Indication: HYPERTENSION
  4. SUFENTANIL CITRATE [Concomitant]
     Indication: GENERAL ANAESTHESIA
     Dates: start: 20071115, end: 20071115
  5. PERFALGAN [Concomitant]
     Dates: start: 20071115, end: 20071115
  6. FLECAINIDE ACETATE [Concomitant]
  7. VASTAREL [Concomitant]

REACTIONS (2)
  - CATHETER RELATED INFECTION [None]
  - EPILEPSY [None]
